FAERS Safety Report 12135946 (Version 2)
Quarter: 2016Q1

REPORT INFORMATION
  Report Type: Spontaneous
  Country: US (occurrence: US)
  Receive Date: 20160302
  Receipt Date: 20160331
  Transmission Date: 20160526
  Serious: Yes (Other)
  Sender: FDA-Public Use
  Company Number: US-JNJFOC-20160225193

PATIENT
  Sex: Female

DRUGS (1)
  1. VISINE A [Suspect]
     Active Substance: NAPHAZOLINE HYDROCHLORIDE\PHENIRAMINE MALEATE
     Indication: PRODUCT USED FOR UNKNOWN INDICATION
     Dosage: DOSE: ONE DROP IN LEFT EYE
     Route: 047
     Dates: start: 20160223

REACTIONS (9)
  - Abnormal sensation in eye [Unknown]
  - Hypertension [Unknown]
  - Extrasystoles [Unknown]
  - Hypoaesthesia eye [Unknown]
  - Ventricular extrasystoles [Unknown]
  - Eye swelling [Unknown]
  - Pupil fixed [Unknown]
  - Vascular rupture [Unknown]
  - Expired product administered [Unknown]

NARRATIVE: CASE EVENT DATE: 20160223
